FAERS Safety Report 21666029 (Version 2)
Quarter: 2022Q4

REPORT INFORMATION
  Report Type: Report from Study
  Country: US (occurrence: US)
  Receive Date: 20221201
  Receipt Date: 20221205
  Transmission Date: 20230113
  Serious: Yes (Death)
  Sender: FDA-Public Use
  Company Number: US-HBP-2022US027655

PATIENT
  Age: 59 Year
  Sex: Male

DRUGS (1)
  1. TRUSELTIQ [Suspect]
     Active Substance: INFIGRATINIB
     Indication: Pancreatic carcinoma
     Dosage: 125 MILLIGRAM, DAILY FOR 21 DAYS FOLLOWED BY 7 DAYS OFF
     Route: 048
     Dates: start: 20220728, end: 2022

REACTIONS (5)
  - Death [Fatal]
  - Pruritus [Unknown]
  - Off label use [Unknown]
  - Dry skin [Unknown]
  - Dry mouth [Unknown]

NARRATIVE: CASE EVENT DATE: 20221117
